FAERS Safety Report 5542096-X (Version None)
Quarter: 2007Q4

REPORT INFORMATION
  Report Type: 
  Country: None (occurrence: None)
  Receive Date: 20071210
  Receipt Date: 20070215
  Transmission Date: 20080405
  Serious: No
  Sender: FDA-Public Use
  Company Number: US-AMGEN-US208092

PATIENT
  Sex: Female
  Weight: 109 kg

DRUGS (4)
  1. ENBREL [Suspect]
     Indication: ANKYLOSING SPONDYLITIS
     Route: 058
     Dates: start: 20061101
  2. ORTHO TRI-CYCLEN (ORTHO-MCNEIL) [Concomitant]
     Route: 065
  3. PRILOSEC [Concomitant]
     Route: 065
  4. INDOCIN [Concomitant]
     Route: 065

REACTIONS (3)
  - SINUSITIS [None]
  - TOOTH ABSCESS [None]
  - UPPER RESPIRATORY TRACT INFECTION [None]
